FAERS Safety Report 20067994 (Version 1)
Quarter: 2021Q4

REPORT INFORMATION
  Report Type: Spontaneous
  Country: IN (occurrence: IN)
  Receive Date: 20211115
  Receipt Date: 20211115
  Transmission Date: 20220303
  Serious: Yes (Other)
  Sender: FDA-Public Use
  Company Number: IN-BoehringerIngelheim-2021-BI-137892

PATIENT
  Age: 52 Year
  Sex: Female

DRUGS (1)
  1. PRADAXA [Suspect]
     Active Substance: DABIGATRAN ETEXILATE MESYLATE
     Indication: Subclavian vein thrombosis
     Route: 065
     Dates: end: 20211111

REACTIONS (1)
  - Strangulated hernia [Recovering/Resolving]
